FAERS Safety Report 7709461-3 (Version None)
Quarter: 2011Q3

REPORT INFORMATION
  Report Type: 
  Country: None (occurrence: None)
  Receive Date: 20110825
  Receipt Date: 20110808
  Transmission Date: 20111222
  Serious: Yes (Hospitalization, Other)
  Sender: FDA-Public Use
  Company Number: US-BAYER-2011-025685

PATIENT
  Age: 22 Year
  Sex: Female
  Weight: 63.492 kg

DRUGS (5)
  1. YASMIN [Suspect]
     Indication: DYSMENORRHOEA
  2. YASMIN [Suspect]
     Indication: MENSTRUATION IRREGULAR
  3. PREVACID [Concomitant]
     Dosage: 30 MG, UNK
     Route: 048
     Dates: start: 20060501
  4. CIPROFLOXACIN [Concomitant]
     Dosage: 500 MG, UNK
     Route: 048
     Dates: start: 20060401
  5. YASMIN [Suspect]
     Indication: CONTRACEPTION
     Dosage: UNK
     Dates: start: 20011201, end: 20070101

REACTIONS (8)
  - ABDOMINAL PAIN [None]
  - GASTROOESOPHAGEAL REFLUX DISEASE [None]
  - DYSPEPSIA [None]
  - VOMITING [None]
  - NEPHROLITHIASIS [None]
  - CHOLECYSTITIS CHRONIC [None]
  - CHEST PAIN [None]
  - RENAL IMPAIRMENT [None]
